FAERS Safety Report 9781618 (Version 2)
Quarter: 2014Q2

REPORT INFORMATION
  Report Type: Other
  Country: US (occurrence: US)
  Receive Date: 20131224
  Receipt Date: 20140630
  Transmission Date: 20141212
  Serious: No
  Sender: FDA-Public Use
  Company Number: US-ACORDA-ACO_100969_2013

PATIENT
  Age: 52 Year
  Sex: Female

DRUGS (6)
  1. AMPYRA [Suspect]
     Indication: MULTIPLE SCLEROSIS
     Dosage: 10 MG, BID
     Route: 048
     Dates: start: 20131217, end: 20131217
  2. COPAXONE [Concomitant]
     Indication: MULTIPLE SCLEROSIS
     Dosage: 20 MG, QD
  3. PAMELOR [Concomitant]
     Indication: HEADACHE
     Dosage: 75 MG, QD
  4. PAXIL [Concomitant]
     Indication: DEPRESSION
     Dosage: 30 MG, QD
  5. BACLOFEN [Concomitant]
     Indication: MUSCLE SPASTICITY
     Dosage: 10 MG, TID
  6. AMBIEN CR [Concomitant]
     Indication: INSOMNIA
     Dosage: 12.5 MG, HS

REACTIONS (1)
  - Chest pain [Recovered/Resolved]
